FAERS Safety Report 4470516-0 (Version None)
Quarter: 2004Q4

REPORT INFORMATION
  Report Type: 
  Country: None (occurrence: None)
  Receive Date: 20041005
  Receipt Date: 20041005
  Transmission Date: 20050328
  Serious: Yes (Life-Threatening, Hospitalization)
  Sender: FDA-Public Use
  Company Number: None

PATIENT
  Age: 41 Year
  Sex: Male
  Weight: 77.1115 kg

DRUGS (1)
  1. VIOXX [Suspect]
     Indication: CORONARY ARTERY DISEASE
     Dosage: 1 TAB 1 X DAY ORAL
     Route: 048
     Dates: start: 20010201, end: 20040821

REACTIONS (2)
  - CORONARY ARTERY OCCLUSION [None]
  - MYOCARDIAL INFARCTION [None]
